FAERS Safety Report 7677774-X (Version None)
Quarter: 2011Q3

REPORT INFORMATION
  Report Type: 
  Country: None (occurrence: None)
  Receive Date: 20110808
  Receipt Date: 20110726
  Transmission Date: 20111222
  Serious: Yes (Other)
  Sender: FDA-Public Use
  Company Number: GB-1187309

PATIENT
  Sex: Female

DRUGS (2)
  1. TOBRADEX [Suspect]
     Indication: POSTOPERATIVE CARE
     Dosage: (OPHTHALMIC)
     Route: 047
     Dates: start: 20110419, end: 20110517
  2. XALATAN [Concomitant]

REACTIONS (1)
  - UVEITIS [None]
